FAERS Safety Report 8412721-4 (Version None)
Quarter: 2012Q2

REPORT INFORMATION
  Report Type: 
  Country: None (occurrence: None)
  Receive Date: 20120605
  Receipt Date: 20120522
  Transmission Date: 20120825
  Serious: Yes (Hospitalization)
  Sender: FDA-Public Use
  Company Number: US-AMGEN-USASP2012027717

PATIENT
  Age: 65 Year
  Sex: Female
  Weight: 45.351 kg

DRUGS (5)
  1. HYDROXYCHLOROQUINE SULFATE [Concomitant]
     Dosage: 200 MG, QD
     Route: 048
  2. PREDNISONE [Concomitant]
     Dosage: 2 MG, QD
     Route: 048
  3. TRAMADOL HCL [Concomitant]
     Dosage: UNK UNK, QD
  4. ENBREL [Suspect]
     Dosage: 50 MG, QWK
     Route: 058
     Dates: start: 20040101
  5. ENBREL [Suspect]
     Indication: RHEUMATOID ARTHRITIS
     Dosage: 50 MG, QWK
     Route: 058
     Dates: start: 20000501

REACTIONS (2)
  - PNEUMONIA [None]
  - MYCOBACTERIUM AVIUM COMPLEX INFECTION [None]
